FAERS Safety Report 16956884 (Version 3)
Quarter: 2019Q4

REPORT INFORMATION
  Report Type: Spontaneous
  Country: US (occurrence: US)
  Receive Date: 20191024
  Receipt Date: 20191202
  Transmission Date: 20200122
  Serious: No
  Sender: FDA-Public Use
  Company Number: US-ALKERMES INC.-ALK-2019-005565

PATIENT
  Age: 34 Year
  Sex: Male
  Weight: 150 kg

DRUGS (3)
  1. VIVITROL [Suspect]
     Active Substance: NALTREXONE
     Dosage: 380 MG, Q3WK
     Route: 030
     Dates: start: 20190418, end: 20190418
  2. VIVITROL [Suspect]
     Active Substance: NALTREXONE
     Indication: ALCOHOLISM
     Dosage: 380 MG, Q3WK
     Route: 030
     Dates: start: 20190822
  3. VIVITROL [Suspect]
     Active Substance: NALTREXONE
     Dosage: 380 MG, Q3WK
     Route: 030
     Dates: start: 20191031, end: 20191031

REACTIONS (3)
  - Gastrectomy [Recovering/Resolving]
  - Inappropriate schedule of product administration [Recovering/Resolving]
  - Alcoholism [Recovering/Resolving]
